FAERS Safety Report 6773644-X (Version None)
Quarter: 2010Q2

REPORT INFORMATION
  Report Type: 
  Country: None (occurrence: None)
  Receive Date: 20100614
  Receipt Date: 20100528
  Transmission Date: 20101027
  Serious: Yes (Hospitalization)
  Sender: FDA-Public Use
  Company Number: CZ-1182074

PATIENT
  Age: 84 Year
  Sex: Female

DRUGS (6)
  1. FLUORESCITE [Suspect]
     Dosage: INTRAOCULAR
     Route: 031
     Dates: start: 20100413, end: 20100413
  2. COXTRAL (NIMESULIDE) [Concomitant]
  3. OXAZEPAM [Concomitant]
  4. GERATAM (PIRACETAM) [Concomitant]
  5. PILOCARPIN (PILOCARPINE HYDROCHLORIDE) [Concomitant]
  6. TIMOLOL MALEATE [Concomitant]

REACTIONS (4)
  - ERYTHEMA [None]
  - HYPOTENSION [None]
  - HYPOVENTILATION [None]
  - SYNCOPE [None]
